FAERS Safety Report 4521669-7 (Version None)
Quarter: 2004Q4

REPORT INFORMATION
  Report Type: 
  Country: None (occurrence: None)
  Receive Date: 20041206
  Receipt Date: 20041118
  Transmission Date: 20050328
  Serious: Yes (Hospitalization)
  Sender: FDA-Public Use
  Company Number: 2004AP05212

PATIENT
  Age: 50 Year
  Sex: Male
  Weight: 77.7 kg

DRUGS (9)
  1. IRESSA [Suspect]
     Indication: GLIOBLASTOMA MULTIFORME
     Dosage: 500 MG DAILY PO
     Route: 048
     Dates: start: 20040714, end: 20041011
  2. IRESSA [Suspect]
     Indication: GLIOBLASTOMA MULTIFORME
     Dosage: 500 MG DAILY PO
     Route: 048
     Dates: start: 20041025
  3. RADIOTHERAPY [Suspect]
     Indication: GLIOBLASTOMA MULTIFORME
     Dosage: 60 GUY IN 30 FRACTIONS OVER 6 WEEKS
     Dates: start: 20040720, end: 20040831
  4. VOLTAREN [Concomitant]
  5. ACETAMINOPHEN [Concomitant]
  6. TRADOLAN [Concomitant]
  7. ANDAPSIN [Concomitant]
  8. BETAPRED [Concomitant]
  9. MYCOSTATIN [Concomitant]

REACTIONS (6)
  - CANDIDIASIS [None]
  - DIARRHOEA [None]
  - HEADACHE [None]
  - MUCOSAL INFLAMMATION [None]
  - RASH [None]
  - WOUND INFECTION [None]
